FAERS Safety Report 5244800-7 (Version None)
Quarter: 2007Q1

REPORT INFORMATION
  Report Type: 
  Country: None (occurrence: None)
  Receive Date: 20070216
  Receipt Date: 20070202
  Transmission Date: 20070707
  Serious: Yes (Death, Hospitalization)
  Sender: FDA-Public Use
  Company Number: 2007000094

PATIENT
  Age: 68 Year
  Sex: Male

DRUGS (4)
  1. ERLOTINIB (TABLET) [Suspect]
     Indication: NON-SMALL CELL LUNG CANCER
     Dosage: 100 UNIT; ORAL
     Route: 048
     Dates: start: 20061030
  2. BEVACIZUMAB (INJECTION FOR INFUSION) [Suspect]
     Indication: NON-SMALL CELL LUNG CANCER
     Dosage: 960 MG, INTRAVENOUS
     Route: 042
     Dates: start: 20061016
  3. ASPIRIN [Concomitant]
  4. FRAGMIN [Concomitant]

REACTIONS (3)
  - HEMIPARESIS [None]
  - MALIGNANT NEOPLASM PROGRESSION [None]
  - SYNCOPE [None]
